FAERS Safety Report 12589098 (Version 2)
Quarter: 2016Q4

REPORT INFORMATION
  Report Type: Spontaneous
  Country: BR (occurrence: BR)
  Receive Date: 20160725
  Receipt Date: 20161011
  Transmission Date: 20170207
  Serious: Yes (Other)
  Sender: FDA-Public Use
  Company Number: PHHY2016BR097886

PATIENT
  Sex: Male
  Weight: 16 kg

DRUGS (1)
  1. AMOXICILLIN SODIUM+POTASSIUM CLAVULANATE SANDOZ [Suspect]
     Active Substance: AMOXICILLIN\CLAVULANATE POTASSIUM
     Indication: PHARYNGEAL ERYTHEMA
     Dosage: 3.5 ML, Q12H
     Route: 048
     Dates: start: 20160706

REACTIONS (11)
  - Oral pruritus [Unknown]
  - Oral mucosal discolouration [Unknown]
  - Pyrexia [Recovered/Resolved]
  - Mouth ulceration [Recovered/Resolved]
  - Oropharyngeal plaque [Unknown]
  - Pruritus [Recovered/Resolved]
  - Throat tightness [Unknown]
  - Tongue disorder [Recovered/Resolved]
  - Rash pruritic [Unknown]
  - Tongue ulceration [Unknown]
  - Tongue blistering [Unknown]
